FAERS Safety Report 16570661 (Version 1)
Quarter: 2019Q3

REPORT INFORMATION
  Report Type: Spontaneous
  Country: US (occurrence: US)
  Receive Date: 20190712
  Receipt Date: 20190712
  Transmission Date: 20191004
  Serious: No
  Sender: FDA-Public Use
  Company Number: None

PATIENT
  Age: 49 Year
  Sex: Female
  Weight: 101.25 kg

DRUGS (1)
  1. EQUATE EYE ALLERGY RELIEF DROPS [Suspect]
     Active Substance: NAPHAZOLINE HYDROCHLORIDE\PHENIRAMINE MALEATE
     Indication: EYE DISORDER
     Dosage: ?          QUANTITY:2 DROP(S);?
     Route: 047
     Dates: start: 20190705, end: 20190707

REACTIONS (10)
  - Lacrimation increased [None]
  - Eye swelling [None]
  - Skin lesion [None]
  - Recalled product [None]
  - Skin fissures [None]
  - Eye pruritus [None]
  - Eyelid margin crusting [None]
  - Eye irritation [None]
  - Ocular hyperaemia [None]
  - Eye discharge [None]

NARRATIVE: CASE EVENT DATE: 20190705
